FAERS Safety Report 4832793-3 (Version None)
Quarter: 2005Q4

REPORT INFORMATION
  Report Type: 
  Country: None (occurrence: None)
  Receive Date: 20051117
  Receipt Date: 20051107
  Transmission Date: 20060501
  Serious: Yes (Other)
  Sender: FDA-Public Use
  Company Number: USA0510111195

PATIENT
  Sex: Female

DRUGS (1)
  1. GEMZAR [Suspect]
     Indication: OVARIAN CANCER
     Dosage: 1200 MG
     Dates: start: 20050524

REACTIONS (6)
  - BLOOD URINE PRESENT [None]
  - CREATININE RENAL CLEARANCE INCREASED [None]
  - NEPHROTIC SYNDROME [None]
  - RENAL FAILURE [None]
  - STOMATITIS [None]
  - TUMOUR MARKER INCREASED [None]
